FAERS Safety Report 10551747 (Version 7)
Quarter: 2017Q4

REPORT INFORMATION
  Report Type: Spontaneous
  Country: US (occurrence: US)
  Receive Date: 20141029
  Receipt Date: 20171219
  Transmission Date: 20180320
  Serious: Yes (Hospitalization, Other)
  Sender: FDA-Public Use
  Company Number: US-PFIZER INC-2014296319

PATIENT
  Age: 74 Year
  Sex: Female
  Weight: 77.11 kg

DRUGS (28)
  1. DILANTIN [Suspect]
     Active Substance: PHENYTOIN
     Indication: SEIZURE
     Dosage: 100 MG, 3-100 MG PER DAY
     Route: 048
     Dates: start: 1976
  2. KEPPRA [Concomitant]
     Active Substance: LEVETIRACETAM
     Indication: SEIZURE
     Dosage: 250 MG, 2X/DAY
     Route: 048
     Dates: start: 20140409
  3. MURO 128 [Concomitant]
     Active Substance: SODIUM CHLORIDE
     Dosage: 4-6 DROPS ONCE A DAY IN LEFT EYE
     Route: 047
     Dates: start: 20110518
  4. PREDNISOLONE ACETATE. [Concomitant]
     Active Substance: PREDNISOLONE ACETATE
     Dosage: 4 DROPS ONCE A DAY ON LEFT EYE
     Route: 047
     Dates: start: 20150107
  5. ZONISAMIDE. [Concomitant]
     Active Substance: ZONISAMIDE
     Indication: SEIZURE
     Dosage: 300 MG, 1X/DAY, (3 TABLETS AT NIGHT)
  6. DILANTIN [Suspect]
     Active Substance: PHENYTOIN
     Dosage: 100 MG, 1 A DAY, AT BEDTIME
     Route: 048
     Dates: start: 20131204
  7. PREDNISOLONE. [Concomitant]
     Active Substance: PREDNISOLONE
     Dosage: UNK
     Dates: start: 201412
  8. PROAIR HFA [Concomitant]
     Active Substance: ALBUTEROL SULFATE
     Dosage: 2 PUFFS FOUR TIMES A DAY AS NEEDED
     Route: 055
     Dates: start: 20150528
  9. MURO 128 [Concomitant]
     Active Substance: SODIUM CHLORIDE
     Dosage: 1 APPLICATION EVERY NIGHT AT BEDTIME ON LEFT EYE)
     Route: 047
     Dates: start: 20150107
  10. AMLODIPINE BESYLATE. [Concomitant]
     Active Substance: AMLODIPINE BESYLATE
     Dosage: 50 MG (5 TABLETS), 1X/DAY
     Route: 048
     Dates: start: 20131204
  11. ASPIRIN. [Concomitant]
     Active Substance: ASPIRIN
     Dosage: 325 MG, 1X/DAY
     Route: 048
     Dates: start: 20140821
  12. FUROSEMIDE. [Concomitant]
     Active Substance: FUROSEMIDE
     Dosage: 40 MG, 1X/DAY
     Route: 048
     Dates: start: 20131204
  13. CALCIUM+ D [Concomitant]
     Dosage: UNK
     Route: 048
     Dates: start: 20110429
  14. LEVETIRACETAM. [Concomitant]
     Active Substance: LEVETIRACETAM
     Indication: SEIZURE
     Dosage: 200 MG, 2X/DAY, (TAKES 1 TWICE A DAY)
  15. DIGOXIN. [Concomitant]
     Active Substance: DIGOXIN
     Dosage: 125 MG, ALTERNATE DAY, (ONE EVERY OTHER DAY)
  16. DILANTIN [Suspect]
     Active Substance: PHENYTOIN
     Dosage: 100 MG, 2X/DAY, (TAKE 1 TWICE A DAY)
  17. DIOVAN [Concomitant]
     Active Substance: VALSARTAN
     Dosage: UNK
  18. DILTIAZEM. [Concomitant]
     Active Substance: DILTIAZEM
     Dosage: 30 MG, 2X/DAY, (TAKES 1/2 TABLET)
  19. REVATIO [Suspect]
     Active Substance: SILDENAFIL CITRATE
     Indication: PULMONARY HYPERTENSION
     Dosage: 20 MG, 3X/DAY
     Route: 048
     Dates: start: 201309
  20. REVATIO [Suspect]
     Active Substance: SILDENAFIL CITRATE
     Dosage: 20 MG, 3X/DAY
     Route: 048
     Dates: start: 20141015
  21. LOSARTAN. [Concomitant]
     Active Substance: LOSARTAN
     Dosage: UNK
  22. REVATIO [Suspect]
     Active Substance: SILDENAFIL CITRATE
     Dosage: 20 MG, 3X/DAY
  23. ZONEGRAN [Concomitant]
     Active Substance: ZONISAMIDE
     Indication: SEIZURE
     Dosage: 300 MG (3 CAPSULE), 1X/DAY
     Route: 048
     Dates: start: 20131204
  24. CPAP [Concomitant]
     Active Substance: DEVICE
     Dosage: UNK
     Dates: start: 20110525
  25. VITAMIN D [Concomitant]
     Active Substance: CHOLECALCIFEROL
     Dosage: UNK
     Route: 048
     Dates: start: 20110429
  26. VENTOLIN [Concomitant]
     Active Substance: ALBUTEROL SULFATE
     Dosage: UNK
  27. AMLODIPINE [Concomitant]
     Active Substance: AMLODIPINE BESYLATE
     Dosage: 10 MG, 1/2 PILL
  28. FUROSEMIDE. [Concomitant]
     Active Substance: FUROSEMIDE
     Dosage: 20 MG, 1X/DAY, (1/2 TABLET)

REACTIONS (4)
  - Neuropathy peripheral [Not Recovered/Not Resolved]
  - Lyme disease [Unknown]
  - Vitamin B complex deficiency [Not Recovered/Not Resolved]
  - Drug ineffective [Unknown]

NARRATIVE: CASE EVENT DATE: 2014
